FAERS Safety Report 4460437-1 (Version None)
Quarter: 2004Q3

REPORT INFORMATION
  Report Type: 
  Country: None (occurrence: None)
  Receive Date: 20040928
  Receipt Date: 20040712
  Transmission Date: 20050211
  Serious: No
  Sender: FDA-Public Use
  Company Number: US-GLAXOSMITHKLINE-A0517860A

PATIENT
  Age: 72 Year
  Sex: Female
  Weight: 53.2 kg

DRUGS (1)
  1. SEREVENT [Suspect]
     Indication: BRONCHIECTASIS
     Dosage: 1PUFF TWICE PER DAY
     Route: 055

REACTIONS (2)
  - DRUG INEFFECTIVE [None]
  - PHARMACEUTICAL PRODUCT COMPLAINT [None]
